FAERS Safety Report 23970622 (Version 1)
Quarter: 2024Q2

REPORT INFORMATION
  Report Type: Report from Study
  Country: NL (occurrence: NL)
  Receive Date: 20240613
  Receipt Date: 20240613
  Transmission Date: 20240716
  Serious: Yes (Hospitalization, Other)
  Sender: FDA-Public Use
  Company Number: NL-BAXTER-2024BAX019381

PATIENT
  Age: 68 Year
  Sex: Male
  Weight: 113 kg

DRUGS (10)
  1. CYCLOPHOSPHAMIDE [Suspect]
     Active Substance: CYCLOPHOSPHAMIDE
     Indication: Diffuse large B-cell lymphoma
     Dosage: 1760 MG, EVERY 3 WEEKS, ONGOING
     Route: 042
     Dates: start: 20240501
  2. EPCORITAMAB [Suspect]
     Active Substance: EPCORITAMAB
     Indication: Diffuse large B-cell lymphoma
     Dosage: 0.16 MG PRIMING DOSE; CL, DL, TOTAL
     Route: 058
     Dates: start: 20240501, end: 20240501
  3. EPCORITAMAB [Suspect]
     Active Substance: EPCORITAMAB
     Dosage: 0.8 MG INTERMEDIATE DOSE; CL, DB, TOTAL
     Route: 058
     Dates: start: 20240508, end: 20240508
  4. EPCORITAMAB [Suspect]
     Active Substance: EPCORITAMAB
     Dosage: 48 MG FULL DOSE; CL, DL5, TOTAL, ONGOING
     Route: 058
     Dates: start: 20240515
  5. RITUXIMAB [Suspect]
     Active Substance: RITUXIMAB
     Indication: Diffuse large B-cell lymphoma
     Dosage: 880 MG, EVERY 3 WEEKS, ONGOING
     Route: 042
     Dates: start: 20240501
  6. PREDNISONE [Suspect]
     Active Substance: PREDNISONE
     Indication: Diffuse large B-cell lymphoma
     Dosage: 100 MG CL-6, DL-5, EVERY 1 DAYS, ONGOING
     Route: 048
     Dates: start: 20240501
  7. VINCRISTINE [Suspect]
     Active Substance: VINCRISTINE
     Indication: Diffuse large B-cell lymphoma
     Dosage: 2 MG, EVERY 3 WEEKS, ONGOING
     Route: 042
     Dates: start: 20240501
  8. DOXORUBICIN [Suspect]
     Active Substance: DOXORUBICIN
     Indication: Diffuse large B-cell lymphoma
     Dosage: 117 MG, EVERY 3 WEEKS, ONGOING
     Route: 042
     Dates: start: 20240501
  9. RIZATRIPTAN [Concomitant]
     Active Substance: RIZATRIPTAN
     Indication: Migraine
     Dosage: 10 MG, AS NECESSARY, START DATE: 2009
     Route: 065
  10. METOPROLOL [Concomitant]
     Active Substance: METOPROLOL
     Indication: Migraine
     Dosage: 100 MG, EVERY 1 DAYS, START DATE: 2009
     Route: 065

REACTIONS (1)
  - Cytokine release syndrome [Recovered/Resolved]

NARRATIVE: CASE EVENT DATE: 20240516
